FAERS Safety Report 10208896 (Version 2)
Quarter: 2014Q3

REPORT INFORMATION
  Report Type: Spontaneous
  Country: DE (occurrence: DE)
  Receive Date: 20140530
  Receipt Date: 20140718
  Transmission Date: 20150326
  Serious: Yes (Hospitalization)
  Sender: FDA-Public Use
  Company Number: DE-ELI_LILLY_AND_COMPANY-DE201405006203

PATIENT
  Age: 62 Year
  Sex: Male
  Weight: 108 kg

DRUGS (15)
  1. CYMBALTA [Suspect]
     Active Substance: DULOXETINE HYDROCHLORIDE
     Dosage: 30 MG, QD
     Route: 065
     Dates: start: 2007, end: 20070906
  2. ZYPREXA [Suspect]
     Active Substance: OLANZAPINE
     Dosage: 5 MG, UNKNOWN
     Route: 065
     Dates: start: 200805
  3. SIMVASTATIN. [Concomitant]
     Active Substance: SIMVASTATIN
     Dosage: 10 MG, EACH EVENING
     Route: 065
     Dates: end: 2011
  4. ZYPREXA [Suspect]
     Active Substance: OLANZAPINE
     Indication: BIPOLAR DISORDER
     Dosage: 2.5 MG, UNKNOWN
     Route: 065
     Dates: start: 20080527, end: 20111026
  5. JANUVIA [Concomitant]
     Active Substance: SITAGLIPTIN PHOSPHATE
     Dosage: UNK, EACH MORNING
     Route: 065
     Dates: end: 2011
  6. VALPROAT [Suspect]
     Active Substance: VALPROATE SODIUM
     Indication: BIPOLAR DISORDER
     Dosage: 600 MG, QD
     Route: 065
     Dates: start: 2007
  7. L-THYROXIN [Concomitant]
     Active Substance: LEVOTHYROXINE SODIUM
     Dosage: 150 DF, QD
     Route: 065
     Dates: end: 2011
  8. CYMBALTA [Suspect]
     Active Substance: DULOXETINE HYDROCHLORIDE
     Dosage: 60 MG, QD
     Route: 065
     Dates: start: 2007, end: 20070906
  9. VALPROAT [Suspect]
     Active Substance: VALPROATE SODIUM
     Dosage: 250 MG, EACH MORNING
     Route: 065
     Dates: end: 2011
  10. METFORMIN [Concomitant]
     Active Substance: METFORMIN HYDROCHLORIDE
     Dosage: 1000 UNK, UNK
     Route: 065
     Dates: end: 2011
  11. VALPROAT [Suspect]
     Active Substance: VALPROATE SODIUM
     Dosage: 900 MG, EACH EVENING
     Route: 065
  12. QUETIAPINE [Concomitant]
     Active Substance: QUETIAPINE
     Dosage: UNK UNK, UNKNOWN
     Route: 065
  13. LOSARTAN [Concomitant]
     Active Substance: LOSARTAN
     Dosage: 50 MG, UNK
     Route: 065
     Dates: end: 2011
  14. VALPROAT [Suspect]
     Active Substance: VALPROATE SODIUM
     Dosage: 1000 MG, EACH EVENING
     Route: 065
     Dates: end: 2011
  15. BELOC ZOK [Concomitant]
     Active Substance: METOPROLOL SUCCINATE
     Dosage: 95 MG, EACH MORNING
     Route: 065
     Dates: end: 2011

REACTIONS (13)
  - Alcohol abuse [Unknown]
  - Obesity [Unknown]
  - Off label use [Unknown]
  - Blood cholesterol increased [Unknown]
  - Haematoma [Unknown]
  - Aggression [Unknown]
  - Blood glucose increased [Unknown]
  - Myocardial infarction [Unknown]
  - Physical assault [Unknown]
  - Limb injury [Unknown]
  - Polyneuropathy [Unknown]
  - Sedation [Unknown]
  - Hypomania [Unknown]

NARRATIVE: CASE EVENT DATE: 2008
